FAERS Safety Report 6889597-X (Version None)
Quarter: 2010Q3

REPORT INFORMATION
  Report Type: 
  Country: None (occurrence: None)
  Receive Date: 20100730
  Receipt Date: 20080320
  Transmission Date: 20110219
  Serious: Yes (Other)
  Sender: FDA-Public Use
  Company Number: US-PFIZER INC-2006089656

PATIENT
  Sex: Male

DRUGS (1)
  1. LIPITOR [Suspect]
     Indication: HYPERLIPIDAEMIA
     Dates: start: 20010101

REACTIONS (5)
  - AMNESIA [None]
  - ASTHENIA [None]
  - DEPRESSION [None]
  - DISORIENTATION [None]
  - NEUROPATHY PERIPHERAL [None]
